FAERS Safety Report 5188064-1 (Version None)
Quarter: 2006Q4

REPORT INFORMATION
  Report Type: 
  Country: None (occurrence: None)
  Receive Date: 20061214
  Receipt Date: 20061129
  Transmission Date: 20070319
  Serious: Yes (Other)
  Sender: FDA-Public Use
  Company Number: BR-2006-037348

PATIENT
  Age: 36 Year
  Sex: Female

DRUGS (4)
  1. BETASERON [Suspect]
     Indication: MULTIPLE SCLEROSIS
     Dosage: MIU, SUBCUTANEOUS; SEE IMAGE
     Route: 058
     Dates: start: 20060101, end: 20060101
  2. BETASERON [Suspect]
     Indication: MULTIPLE SCLEROSIS
     Dosage: MIU, SUBCUTANEOUS; SEE IMAGE
     Route: 058
     Dates: start: 20060120, end: 20060101
  3. AMITRIPTYLINE HCL [Concomitant]
  4. CLONAZEPAM [Concomitant]

REACTIONS (4)
  - ADVERSE DRUG REACTION [None]
  - BLINDNESS UNILATERAL [None]
  - MEMORY IMPAIRMENT [None]
  - MONOPLEGIA [None]
